FAERS Safety Report 4359978-7 (Version None)
Quarter: 2004Q2

REPORT INFORMATION
  Report Type: 
  Country: None (occurrence: None)
  Receive Date: 20040513
  Receipt Date: 20040428
  Transmission Date: 20050107
  Serious: Yes (Hospitalization)
  Sender: FDA-Public Use
  Company Number: S04-USA-02680-01

PATIENT
  Age: 57 Year
  Sex: Male
  Weight: 112.4921 kg

DRUGS (21)
  1. NAMENDA [Suspect]
     Indication: SENILE DEMENTIA
     Dosage: 5 MG BID PO
     Route: 048
     Dates: start: 20040401, end: 20040426
  2. NAMENDA [Suspect]
     Indication: SENILE DEMENTIA
     Dosage: 10 MG QAM PO
     Route: 048
     Dates: start: 20040427
  3. NAMENDA [Suspect]
     Indication: SENILE DEMENTIA
     Dosage: 5 MG QHS PO
     Route: 048
     Dates: start: 20040427
  4. NAMENDA [Suspect]
     Indication: SENILE DEMENTIA
     Dosage: 5 MG QD PO
     Route: 048
     Dates: start: 20040408, end: 20040401
  5. ZESTRIL [Suspect]
     Indication: HYPERTENSION
     Dosage: 10 MG QD
     Dates: end: 20040421
  6. KLONOPIN [Concomitant]
  7. SENOKOT [Concomitant]
  8. VIOXX [Concomitant]
  9. QUININE [Concomitant]
  10. PROTONIX [Concomitant]
  11. ARICEPT [Concomitant]
  12. SINEMET CR [Concomitant]
  13. DEPAKOTE [Concomitant]
  14. FLOMAX [Concomitant]
  15. EFFEXOR XR [Concomitant]
  16. MIRAPEX [Concomitant]
  17. CLONIDINE HCL [Concomitant]
  18. MYLANTA [Concomitant]
  19. MILK OF MAGNESIA TAB [Concomitant]
  20. TYLENOL [Concomitant]
  21. NEURONTIN [Concomitant]

REACTIONS (19)
  - ASTHENIA [None]
  - CARDIAC FAILURE CONGESTIVE [None]
  - CHEST PAIN [None]
  - CHEST X-RAY ABNORMAL [None]
  - CONFUSIONAL STATE [None]
  - DEHYDRATION [None]
  - DEPRESSED LEVEL OF CONSCIOUSNESS [None]
  - DIZZINESS [None]
  - FALL [None]
  - HAEMOGLOBIN DECREASED [None]
  - HYDROCEPHALUS [None]
  - HYPOTENSION [None]
  - INFECTION [None]
  - LETHARGY [None]
  - POLYURIA [None]
  - PULMONARY OEDEMA [None]
  - RED BLOOD CELL COUNT DECREASED [None]
  - SPEECH DISORDER [None]
  - URINARY TRACT INFECTION [None]
